FAERS Safety Report 6139115-9 (Version None)
Quarter: 2009Q2

REPORT INFORMATION
  Report Type: 
  Country: None (occurrence: None)
  Receive Date: 20090401
  Receipt Date: 20090327
  Transmission Date: 20091009
  Serious: Yes (Other)
  Sender: FDA-Public Use
  Company Number: TR-JNJFOC-20090306573

PATIENT
  Sex: Female

DRUGS (2)
  1. TOPAMAX [Suspect]
     Indication: MIGRAINE
     Route: 048
  2. SERTRALINE HYDROCHLORIDE [Concomitant]
     Indication: ANXIETY DISORDER
     Route: 065

REACTIONS (1)
  - ANGLE CLOSURE GLAUCOMA [None]
